FAERS Safety Report 6592917-7 (Version None)
Quarter: 2010Q1

REPORT INFORMATION
  Report Type: 
  Country: None (occurrence: None)
  Receive Date: 20100212
  Receipt Date: 20100127
  Transmission Date: 20100710
  Serious: No
  Sender: FDA-Public Use
  Company Number: POMP-1000778

PATIENT
  Age: 29 Year
  Sex: Male
  Weight: 93 kg

DRUGS (6)
  1. MYOZYME [Suspect]
     Indication: GLYCOGEN STORAGE DISEASE TYPE II
     Dosage: 20 MG/KG, Q2W, INTRAVENOUS
     Route: 042
  2. ACTONEL [Concomitant]
  3. VITAMIN D NOS (VITAMIN D NOS) [Concomitant]
  4. CALCIUM (CALCIUM) [Concomitant]
  5. CHOLESTYRAMINE (COLESTYRAMINE) [Concomitant]
  6. HUMALOG [Concomitant]

REACTIONS (2)
  - GLYCOSYLATED HAEMOGLOBIN INCREASED [None]
  - TYPE 2 DIABETES MELLITUS [None]
